FAERS Safety Report 6739034-0 (Version None)
Quarter: 2010Q2

REPORT INFORMATION
  Report Type: 
  Country: None (occurrence: None)
  Receive Date: 20100524
  Receipt Date: 20100524
  Transmission Date: 20101027
  Serious: No
  Sender: FDA-Public Use
  Company Number: None

PATIENT
  Age: 26 Year
  Sex: Female
  Weight: 63.5036 kg

DRUGS (10)
  1. GEODON [Suspect]
     Indication: BIPOLAR DISORDER
     Dosage: 80MG DAILY PO
     Route: 048
     Dates: start: 20100519, end: 20100521
  2. GEODON [Suspect]
     Indication: ANXIETY
  3. ZOLOFT 100MG/DAY [Concomitant]
  4. XANAX 4MG/DAY [Concomitant]
  5. AMILORIDE 10MG/DAY [Concomitant]
  6. INDOCIN 100MG/DAY [Concomitant]
  7. COGENTIN 2MG/DAY [Concomitant]
  8. VENTOLIN HFA [Concomitant]
  9. ULTRAM 50-100MG [Concomitant]
  10. ABILIFY [Concomitant]

REACTIONS (2)
  - AMNESIA [None]
  - CONFUSIONAL STATE [None]
